FAERS Safety Report 25668522 (Version 1)
Quarter: 2025Q3

REPORT INFORMATION
  Report Type: Spontaneous
  Country: US (occurrence: US)
  Receive Date: 20250812
  Receipt Date: 20250812
  Transmission Date: 20251020
  Serious: No
  Sender: TEVA
  Company Number: US-TEVA-VS-3359275

PATIENT
  Age: 47 Year
  Sex: Female

DRUGS (2)
  1. GABAPENTIN [Suspect]
     Active Substance: GABAPENTIN
     Indication: Product used for unknown indication
     Route: 065
     Dates: start: 20250713
  2. PRIALT [Suspect]
     Active Substance: ZICONOTIDE ACETATE
     Indication: Pain
     Dosage: 100 ?G/ML, 1 MCG/DAY
     Route: 037
     Dates: start: 2023

REACTIONS (4)
  - Dizziness [Unknown]
  - Balance disorder [Unknown]
  - Dysaesthesia [Not Recovered/Not Resolved]
  - Bradyphrenia [Unknown]

NARRATIVE: CASE EVENT DATE: 20250701
